FAERS Safety Report 26149427 (Version 1)
Quarter: 2025Q4

REPORT INFORMATION
  Report Type: Spontaneous
  Country: US (occurrence: US)
  Receive Date: 20251212
  Receipt Date: 20251212
  Transmission Date: 20260118
  Serious: Yes (Life-Threatening, Hospitalization, Other)
  Sender: MICRO LABS LIMITED
  Company Number: US-MICRO LABS LIMITED-ML2025-06525

PATIENT
  Age: 27 Month
  Sex: Female
  Weight: 13.7 kg

DRUGS (2)
  1. MIDAZOLAM [Suspect]
     Active Substance: MIDAZOLAM
     Indication: Sedative therapy
     Dosage: 0.5 MG/KG
     Route: 048
  2. KETAMINE [Suspect]
     Active Substance: KETAMINE
     Indication: Sedative therapy
     Dosage: 6 MG/KG
     Route: 048

REACTIONS (5)
  - Coma [Recovered/Resolved]
  - Drug interaction [Unknown]
  - Oxygen saturation decreased [Recovered/Resolved]
  - Respiratory depression [Recovered/Resolved]
  - Therapeutic product effect delayed [Recovered/Resolved]
